FAERS Safety Report 7227641-0 (Version None)
Quarter: 2011Q1

REPORT INFORMATION
  Report Type: 
  Country: None (occurrence: None)
  Receive Date: 20110114
  Receipt Date: 20110111
  Transmission Date: 20110831
  Serious: Yes (Other)
  Sender: FDA-Public Use
  Company Number: US-PFIZER INC-2007097226

PATIENT
  Sex: Female

DRUGS (3)
  1. DIOVAN [Concomitant]
  2. AMLODIPINE BESYLATE [Suspect]
     Dosage: 10 MG, UNK
  3. NORVASC [Suspect]
     Dosage: UNK

REACTIONS (5)
  - BLOOD PRESSURE DECREASED [None]
  - POLLAKIURIA [None]
  - SOMNOLENCE [None]
  - DYSGEUSIA [None]
  - FEELING COLD [None]
